FAERS Safety Report 19518108 (Version 3)
Quarter: 2022Q1

REPORT INFORMATION
  Report Type: Spontaneous
  Country: US (occurrence: US)
  Receive Date: 20210712
  Receipt Date: 20220302
  Transmission Date: 20220423
  Serious: Yes (Other)
  Sender: FDA-Public Use
  Company Number: US-JNJFOC-20210716344

PATIENT
  Age: 5 Decade
  Sex: Female

DRUGS (3)
  1. ELMIRON [Suspect]
     Active Substance: PENTOSAN POLYSULFATE SODIUM
     Indication: Cystitis interstitial
     Route: 048
     Dates: start: 199801, end: 202008
  2. LISINOPRIL [Concomitant]
     Active Substance: LISINOPRIL
     Indication: Blood pressure measurement
     Route: 065
     Dates: start: 2011
  3. ESTRIOL [Concomitant]
     Active Substance: ESTRIOL
     Indication: Hormone level abnormal
     Route: 065
     Dates: start: 1984

REACTIONS (2)
  - Retinopathy [Not Recovered/Not Resolved]
  - Blindness [Unknown]

NARRATIVE: CASE EVENT DATE: 20000101
